FAERS Safety Report 4356639-5 (Version None)
Quarter: 2004Q2

REPORT INFORMATION
  Report Type: 
  Country: None (occurrence: None)
  Receive Date: 20040506
  Receipt Date: 20040424
  Transmission Date: 20050107
  Serious: Yes (Life-Threatening, Hospitalization)
  Sender: FDA-Public Use
  Company Number: 04P-062-0258916-00

PATIENT
  Age: 43 Year
  Sex: Female
  Weight: 65 kg

DRUGS (5)
  1. AKINETON [Suspect]
     Dosage: TABLET, 1-2 TABLETS DAILY, PER ORAL
     Route: 048
     Dates: end: 20040424
  2. HALDOL [Suspect]
     Indication: SUICIDE ATTEMPT
     Dosage: 100 MG ONCE, PER ORAL
     Route: 048
     Dates: start: 20040424, end: 20040424
  3. CARBAMAZEPINE [Suspect]
     Dosage: 450 MG, PER ORAL
     Route: 048
     Dates: end: 20040224
  4. LORAZEPAM [Suspect]
     Dosage: 1.5 TABLET, PER ORAL
     Route: 048
     Dates: end: 20040424
  5. ETHANOL [Suspect]
     Indication: SUICIDE ATTEMPT
     Dosage: 0.7 LIT, PER ORAL
     Route: 048
     Dates: start: 20040424, end: 20040424

REACTIONS (5)
  - ALCOHOL POISONING [None]
  - LOSS OF CONSCIOUSNESS [None]
  - OVERDOSE [None]
  - RESPIRATORY FAILURE [None]
  - SUICIDE ATTEMPT [None]
